FAERS Safety Report 8531359 (Version 2)
Quarter: 2012Q4

REPORT INFORMATION
  Report Type: 
  Country: US (occurrence: US)
  Receive Date: 20120426
  Receipt Date: 20120830
  Transmission Date: 20130627
  Serious: Yes (Hospitalization, Other)
  Sender: FDA-Public Use
  Company Number: US-BAYER-2012-040312

PATIENT
  Age: 32 Year
  Sex: Female
  Weight: 70.75 kg

DRUGS (15)
  1. YAZ [Suspect]
     Indication: CONTRACEPTION
     Dosage: UNK
  2. YASMIN [Suspect]
     Indication: CONTRACEPTION
     Dosage: UNK
  3. SINGULAIR [Concomitant]
     Dosage: UNK
     Dates: start: 2006
  4. ASMANEX [Concomitant]
     Dosage: UNK
     Dates: start: 2006
  5. ALBUTEROL [Concomitant]
     Dosage: UNK
     Dates: start: 2006
  6. PHENAZOPYRIDINE [Concomitant]
     Dosage: 200 mg, UNK
  7. NITROFURANTOIN [Concomitant]
  8. METOCLOPRAMIDE [Concomitant]
     Dosage: 10 mg, UNK
  9. NEOMYCIN [Concomitant]
     Dosage: 500 mg, UNK
  10. METRONIDAZOLE [Concomitant]
     Dosage: 500 mg, UNK
  11. DETROL LA [Concomitant]
     Dosage: 4 UNK, UNK
  12. LORAZEPAM [Concomitant]
     Dosage: 0.5 mg, UNK
  13. PROVENTIL [Concomitant]
     Dosage: 90 mcg
  14. CITALOPRAM HYDROBROMIDE [Concomitant]
     Dosage: 10 mg, UNK
  15. ZITHROMAX [Concomitant]

REACTIONS (5)
  - Pulmonary embolism [None]
  - Thrombosis [None]
  - Injury [None]
  - Pain [None]
  - Emotional distress [None]
